FAERS Safety Report 8425176-0 (Version None)
Quarter: 2012Q2

REPORT INFORMATION
  Report Type: 
  Country: None (occurrence: None)
  Receive Date: 20120611
  Receipt Date: 20120602
  Transmission Date: 20120825
  Serious: Yes (Hospitalization, Other)
  Sender: FDA-Public Use
  Company Number: US-US-EMD SERONO, INC.-7052165

PATIENT
  Sex: Male
  Weight: 59 kg

DRUGS (3)
  1. REBIF [Suspect]
     Indication: MULTIPLE SCLEROSIS
     Route: 058
     Dates: start: 20070806
  2. ACETAMINOPHEN [Concomitant]
     Indication: PREMEDICATION
  3. IBUPROFEN [Concomitant]
     Indication: PREMEDICATION

REACTIONS (3)
  - MULTIPLE SCLEROSIS RELAPSE [None]
  - GRAND MAL CONVULSION [None]
  - EPILEPSY [None]
